FAERS Safety Report 8601601-7 (Version None)
Quarter: 2012Q3

REPORT INFORMATION
  Report Type: 
  Country: None (occurrence: None)
  Receive Date: 20120817
  Receipt Date: 20111221
  Transmission Date: 20120928
  Serious: No
  Sender: FDA-Public Use
  Company Number: US-BRISTOL-MYERS SQUIBB COMPANY-16296238

PATIENT
  Sex: Female

DRUGS (2)
  1. SPRYCEL [Suspect]
  2. AMITRIPTYLINE HCL [Suspect]

REACTIONS (2)
  - ANXIETY [None]
  - DEPRESSION [None]
